FAERS Safety Report 12967545 (Version 1)
Quarter: 2016Q4

REPORT INFORMATION
  Report Type: Spontaneous
  Country: US (occurrence: US)
  Receive Date: 20161123
  Receipt Date: 20161123
  Transmission Date: 20170207
  Serious: Yes (Other)
  Sender: FDA-Public Use
  Company Number: US-ALVOGEN-2016-ALVOGEN-021723

PATIENT
  Sex: Female
  Weight: 98.43 kg

DRUGS (1)
  1. LISINOPRIL. [Suspect]
     Active Substance: LISINOPRIL
     Indication: PRODUCT USED FOR UNKNOWN INDICATION

REACTIONS (3)
  - Swelling face [Recovered/Resolved]
  - Local swelling [Recovered/Resolved]
  - Lip swelling [Recovered/Resolved]
